FAERS Safety Report 8299693-0 (Version None)
Quarter: 2012Q2

REPORT INFORMATION
  Report Type: 
  Country: None (occurrence: None)
  Receive Date: 20120419
  Receipt Date: 20120413
  Transmission Date: 20120825
  Serious: Yes (Other)
  Sender: FDA-Public Use
  Company Number: US-ROCHE-1030205

PATIENT
  Sex: Female
  Weight: 17.3 kg

DRUGS (3)
  1. NUTROPIN AQ [Suspect]
     Indication: GROWTH HORMONE DEFICIENCY
     Route: 058
     Dates: start: 20120102, end: 20120101
  2. VITAMIN [Concomitant]
     Indication: PRODUCT USED FOR UNKNOWN INDICATION
  3. NUTROPIN AQ [Suspect]
     Route: 058
     Dates: start: 20120101

REACTIONS (4)
  - GASTROENTERITIS VIRAL [None]
  - VOMITING [None]
  - CONVULSION [None]
  - DIARRHOEA [None]
